FAERS Safety Report 5668003-7 (Version None)
Quarter: 2008Q1

REPORT INFORMATION
  Report Type: 
  Country: None (occurrence: None)
  Receive Date: 20080315
  Receipt Date: 20080212
  Transmission Date: 20080703
  Serious: No
  Sender: FDA-Public Use
  Company Number: US-ABBOTT-08P-163-0437874-00

PATIENT
  Sex: Male
  Weight: 118 kg

DRUGS (1)
  1. HUMIRA [Suspect]
     Indication: PSORIASIS
     Route: 058
     Dates: start: 20071201

REACTIONS (3)
  - ERYTHEMA [None]
  - PSORIASIS [None]
  - SKIN IRRITATION [None]
